FAERS Safety Report 23138045 (Version 1)
Quarter: 2023Q4

REPORT INFORMATION
  Report Type: Spontaneous
  Country: US (occurrence: US)
  Receive Date: 20231102
  Receipt Date: 20231102
  Transmission Date: 20240110
  Serious: No
  Sender: FDA-Public Use
  Company Number: US-GLENMARK PHARMACEUTICALS-2023GMK084246

PATIENT

DRUGS (2)
  1. FAMOTIDINE [Suspect]
     Active Substance: FAMOTIDINE
     Indication: Gastrointestinal disorder
     Dosage: 20 MILLIGRAM, QD
     Route: 065
  2. FAMOTIDINE [Suspect]
     Active Substance: FAMOTIDINE
     Dosage: 40 MILLIGRAM, QD
     Route: 065

REACTIONS (5)
  - Gastrooesophageal reflux disease [Unknown]
  - Dyspepsia [Unknown]
  - Product substitution issue [Unknown]
  - Drug ineffective [Unknown]
  - Product size issue [Unknown]
